FAERS Safety Report 8181824-4 (Version None)
Quarter: 2012Q1

REPORT INFORMATION
  Report Type: 
  Country: None (occurrence: None)
  Receive Date: 20120302
  Receipt Date: 20120223
  Transmission Date: 20120608
  Serious: Yes (Hospitalization, Other)
  Sender: FDA-Public Use
  Company Number: US-B.I. PHARMACEUTICALS,INC./RIDGEFIELD-2012-BP-03915BP

PATIENT
  Age: 79 Year
  Sex: Male

DRUGS (9)
  1. OXYCODONE/APAP (OXYCODONE/APAP) [Concomitant]
     Route: 065
  2. FINASTERIDE [Concomitant]
     Route: 065
  3. DEXAMETHASONE [Concomitant]
     Indication: MULTIPLE MYELOMA
     Route: 065
     Dates: start: 20110718
  4. FAMOTIDINE [Concomitant]
     Route: 065
  5. SIMVASTATIN [Concomitant]
     Route: 065
  6. FLOMAX [Suspect]
  7. IBUPROFEN [Concomitant]
     Route: 065
  8. REVLIMID [Suspect]
     Indication: MULTIPLE MYELOMA
     Dosage: 50 MG
     Route: 048
     Dates: start: 20110718, end: 20110728
  9. LISINOPRIL [Suspect]
     Route: 065

REACTIONS (3)
  - SYNCOPE [None]
  - DIZZINESS [None]
  - RASH [None]
